FAERS Safety Report 5071004-3 (Version None)
Quarter: 2006Q3

REPORT INFORMATION
  Report Type: 
  Country: None (occurrence: None)
  Receive Date: 20060804
  Receipt Date: 20051205
  Transmission Date: 20061208
  Serious: No
  Sender: FDA-Public Use
  Company Number: US-GLAXOSMITHKLINE-A0584562A

PATIENT
  Age: 64 Year
  Sex: Female

DRUGS (1)
  1. NICORETTE [Suspect]
     Dates: start: 20051128, end: 20051203

REACTIONS (4)
  - MASS [None]
  - PARAESTHESIA ORAL [None]
  - PRURITUS [None]
  - SWELLING FACE [None]
